FAERS Safety Report 5957066-7 (Version None)
Quarter: 2008Q4

REPORT INFORMATION
  Report Type: 
  Country: None (occurrence: None)
  Receive Date: 20081118
  Receipt Date: 20081106
  Transmission Date: 20090506
  Serious: Yes (Hospitalization)
  Sender: FDA-Public Use
  Company Number: PHHY2008JP25472

PATIENT
  Sex: Male
  Weight: 60 kg

DRUGS (4)
  1. DIOVAN [Suspect]
     Indication: HYPERTENSION
     Dosage: 80 MG, QD
     Route: 048
     Dates: start: 20071023
  2. ADALAT CC [Concomitant]
     Indication: HYPERTENSION
     Dosage: 20 MG
     Route: 048
     Dates: start: 20080916
  3. ASPIRIN [Concomitant]
     Dosage: 100 MG
     Route: 048
     Dates: start: 20070808
  4. NITOROL R [Concomitant]
     Dosage: 20 MG
     Route: 048
     Dates: start: 20080916

REACTIONS (2)
  - LOSS OF CONSCIOUSNESS [None]
  - PRINZMETAL ANGINA [None]
